FAERS Safety Report 6782707-4 (Version None)
Quarter: 2010Q2

REPORT INFORMATION
  Report Type: 
  Country: None (occurrence: None)
  Receive Date: 20100616
  Receipt Date: 20100607
  Transmission Date: 20101027
  Serious: Yes (Death, Hospitalization)
  Sender: FDA-Public Use
  Company Number: 2010AL003397

PATIENT
  Age: 67 Year
  Sex: Male

DRUGS (9)
  1. IBUPROFEN [Suspect]
     Dosage: 1.2 GM;UNK;PO
     Route: 048
     Dates: start: 20091101, end: 20100505
  2. AMIAS [Concomitant]
  3. DALTEPARIN SODIUM [Concomitant]
  4. ADALAT [Concomitant]
  5. SIMVASTATIN [Concomitant]
  6. PARACETAMOL [Concomitant]
  7. ERLOTINIB [Concomitant]
  8. POTASSIUM [Concomitant]
  9. UNSPECIFIED DRUGS [Concomitant]

REACTIONS (6)
  - HAEMOGLOBIN DECREASED [None]
  - LUNG NEOPLASM MALIGNANT [None]
  - MALIGNANT NEOPLASM PROGRESSION [None]
  - PLEURAL EFFUSION [None]
  - RENAL FAILURE [None]
  - SELF-MEDICATION [None]
